FAERS Safety Report 4980542-0 (Version None)
Quarter: 2006Q2

REPORT INFORMATION
  Report Type: 
  Country: None (occurrence: None)
  Receive Date: 20060424
  Receipt Date: 20010302
  Transmission Date: 20061013
  Serious: Yes (Other)
  Sender: FDA-Public Use
  Company Number: JP-BRISTOL-MYERS SQUIBB COMPANY-10738128

PATIENT
  Age: 84 Year
  Sex: Male

DRUGS (9)
  1. MAXIPIME [Suspect]
     Indication: PNEUMONIA
     Route: 041
     Dates: start: 20010205, end: 20010208
  2. NIVADIL [Concomitant]
     Dosage: DOSING INFORMATION UNKNOWN
     Route: 048
  3. MUCOSOLVAN [Concomitant]
     Dosage: DOSING INFORMATION UNKNOWN
  4. GASTER [Concomitant]
     Dosage: DOSING INFORMATION UNKNOWN
  5. MUCOSTA [Concomitant]
     Dosage: DOSING INFORMATION UNKNOWN
     Route: 048
  6. ZYLORIC [Concomitant]
     Dosage: DOSING INFORMATION UNKNOWN
     Route: 048
  7. VOLTAREN [Concomitant]
     Route: 054
     Dates: start: 20010205, end: 20010208
  8. MAGNESIUM OXIDE [Concomitant]
  9. SHOUSAIKOTOU (CHINESE MEDICATION) [Concomitant]
     Route: 048
     Dates: start: 20010205, end: 20010208

REACTIONS (1)
  - INTERSTITIAL LUNG DISEASE [None]
